FAERS Safety Report 4786152-2 (Version None)
Quarter: 2005Q3

REPORT INFORMATION
  Report Type: 
  Country: None (occurrence: None)
  Receive Date: 20050930
  Receipt Date: 20050921
  Transmission Date: 20060218
  Serious: Yes (Other)
  Sender: FDA-Public Use
  Company Number: 2005131096

PATIENT
  Age: 12 Year
  Sex: Female
  Weight: 58.0604 kg

DRUGS (3)
  1. BENADRYL [Suspect]
     Indication: SUICIDE ATTEMPT
     Dosage: 11 ULTRATABS ONE TIME, ORAL
     Route: 048
     Dates: start: 20050920, end: 20050920
  2. TYLENOL PM (DIPHENHYDRAMINE, PARACETAMOL) [Suspect]
     Indication: SUICIDE ATTEMPT
     Dosage: 1 TABLET ONE TIME, ORAL
     Route: 048
     Dates: start: 20050920, end: 20050920
  3. TRAMADOL HCL [Suspect]
     Indication: SUICIDE ATTEMPT
     Dosage: 4 TABLETS ONCE TIME, ORAL
     Route: 048
     Dates: start: 20050920, end: 20050920

REACTIONS (6)
  - DEPRESSED LEVEL OF CONSCIOUSNESS [None]
  - HYPERTENSION [None]
  - INTENTIONAL MISUSE [None]
  - MULTIPLE DRUG OVERDOSE [None]
  - NAUSEA [None]
  - SWELLING FACE [None]
